FAERS Safety Report 17863403 (Version 1)
Quarter: 2020Q2

REPORT INFORMATION
  Report Type: Report from Study
  Country: TR (occurrence: TR)
  Receive Date: 20200605
  Receipt Date: 20200605
  Transmission Date: 20200714
  Serious: Yes (Other)
  Sender: FDA-Public Use
  Company Number: TR-ROCHE-2607750

PATIENT

DRUGS (3)
  1. OMBITASVIR;PARITAPREVIR;RITONAVIR [Interacting]
     Active Substance: OMBITASVIR\PARITAPREVIR\RITONAVIR
     Indication: HEPATITIS C
     Route: 048
  2. DASABUVIR [Interacting]
     Active Substance: DASABUVIR
     Indication: HEPATITIS C
     Dosage: 2 TABLET PER DAY
     Route: 048
  3. RIBAVIRIN. [Suspect]
     Active Substance: RIBAVIRIN
     Indication: HEPATITIS C
     Dosage: AS REQUIRED
     Route: 048

REACTIONS (40)
  - Hepatotoxicity [Unknown]
  - Aspartate aminotransferase increased [Unknown]
  - Insomnia [Unknown]
  - Decreased appetite [Unknown]
  - Oedema peripheral [Unknown]
  - Dry mouth [Unknown]
  - Vomiting [Unknown]
  - Chromaturia [Unknown]
  - Weight increased [Unknown]
  - Proctalgia [Unknown]
  - Hyperhidrosis [Unknown]
  - Fatigue [Unknown]
  - Dizziness [Unknown]
  - Unevaluable event [Unknown]
  - Myalgia [Unknown]
  - Pruritus [Unknown]
  - Rash [Unknown]
  - Loss of personal independence in daily activities [Unknown]
  - Dyspnoea [Unknown]
  - Increased appetite [Unknown]
  - Dyspepsia [Unknown]
  - Constipation [Unknown]
  - Alanine aminotransferase increased [Unknown]
  - Blood bilirubin increased [Unknown]
  - Headache [Unknown]
  - Diarrhoea [Unknown]
  - Arthralgia [Unknown]
  - Arrhythmia [Unknown]
  - Drug interaction [Unknown]
  - Cough [Unknown]
  - Jaundice [Unknown]
  - Hot flush [Unknown]
  - Anaemia [Unknown]
  - Asthenia [Unknown]
  - Nausea [Unknown]
  - Dry skin [Unknown]
  - Palpitations [Unknown]
  - Abdominal pain upper [Unknown]
  - Nightmare [Unknown]
  - Blood pressure increased [Unknown]
